FAERS Safety Report 9669198 (Version 1)
Quarter: 2013Q4

REPORT INFORMATION
  Report Type: Spontaneous
  Country: US (occurrence: US)
  Receive Date: 20131105
  Receipt Date: 20131105
  Transmission Date: 20140711
  Serious: Yes (Other)
  Sender: FDA-Public Use
  Company Number: PHHY2013US122918

PATIENT
  Age: 8 Month
  Sex: Female

DRUGS (3)
  1. CICLOSPORIN [Suspect]
  2. RITUXIMAB [Suspect]
     Dosage: 375 MG/M2, QW
  3. RITUXIMAB [Suspect]
     Dosage: 375 MG/M2, MONTHLY

REACTIONS (6)
  - Nervous system disorder [Unknown]
  - Condition aggravated [Unknown]
  - VIth nerve paralysis [Unknown]
  - Cognitive disorder [Unknown]
  - Corneal reflex decreased [Unknown]
  - Axonal neuropathy [Unknown]
